FAERS Safety Report 6702124-2 (Version None)
Quarter: 2010Q2

REPORT INFORMATION
  Report Type: 
  Country: None (occurrence: None)
  Receive Date: 20100429
  Receipt Date: 20100419
  Transmission Date: 20101027
  Serious: Yes (Death, Hospitalization)
  Sender: FDA-Public Use
  Company Number: US-GENZYME-CLOF-10712

PATIENT
  Sex: Male

DRUGS (2)
  1. PLACEBO [Suspect]
     Indication: ACUTE MYELOID LEUKAEMIA
     Dates: start: 20071005, end: 20071009
  2. ARA-C [Suspect]
     Indication: ACUTE MYELOID LEUKAEMIA
     Dosage: UNK
     Dates: start: 20071005, end: 20071008

REACTIONS (7)
  - DISEASE PROGRESSION [None]
  - DYSPNOEA [None]
  - ENCEPHALOPATHY [None]
  - ENTEROCOCCAL BACTERAEMIA [None]
  - HYPERTENSION [None]
  - HYPOXIA [None]
  - RESPIRATORY DISTRESS [None]
